FAERS Safety Report 24073225 (Version 1)
Quarter: 2024Q3

REPORT INFORMATION
  Report Type: Spontaneous
  Country: NL (occurrence: NL)
  Receive Date: 20240710
  Receipt Date: 20240710
  Transmission Date: 20241017
  Serious: Yes (Hospitalization)
  Sender: ELI LILLY AND CO
  Company Number: NL-ELI_LILLY_AND_COMPANY-NL202407000815

PATIENT
  Age: 71 Year
  Sex: Female

DRUGS (1)
  1. ADCIRCA [Suspect]
     Active Substance: TADALAFIL
     Indication: Pulmonary hypertension
     Dosage: 20 MG, DAILY
     Route: 048

REACTIONS (2)
  - Hip fracture [Unknown]
  - Fall [Unknown]
